FAERS Safety Report 17912941 (Version 18)
Quarter: 2022Q3

REPORT INFORMATION
  Report Type: Report from Study
  Country: GB (occurrence: GB)
  Receive Date: 20200618
  Receipt Date: 20220706
  Transmission Date: 20221027
  Serious: Yes (Hospitalization, Other)
  Sender: FDA-Public Use
  Company Number: GB-ROCHE-1753955

PATIENT
  Age: 40 Year
  Sex: Female

DRUGS (40)
  1. TRASTUZUMAB [Suspect]
     Active Substance: TRASTUZUMAB
     Indication: Breast cancer metastatic
     Dosage: 651 MILLIGRAM, CYCLE, LOADING DOSE PLANNED NUMBER OF CYCLES COMPLETED
     Route: 041
     Dates: start: 20160323, end: 20160323
  2. TRASTUZUMAB [Suspect]
     Active Substance: TRASTUZUMAB
     Dosage: 483 MILLIGRAM, Q3W
     Route: 042
     Dates: start: 20160413
  3. TRASTUZUMAB [Suspect]
     Active Substance: TRASTUZUMAB
     Dosage: 483 MG, Q2W (483 MILLIGRAM, Q3W)
     Route: 042
     Dates: start: 20160413
  4. TRASTUZUMAB [Suspect]
     Active Substance: TRASTUZUMAB
     Dosage: 651 MILLIGRAM, Q3W, , LOADING DOSE PLANNED NUMBER OF CYCLES COMPLETED
     Route: 041
     Dates: start: 20160323, end: 20160323
  5. TRASTUZUMAB [Suspect]
     Active Substance: TRASTUZUMAB
     Dosage: 651 MILLIGRAM, Q3W, (651 MG, 1X/DAY, LOADING DOSEPLANNED NUMBER
     Route: 041
     Dates: start: 20160323, end: 20160323
  6. TRASTUZUMAB [Suspect]
     Active Substance: TRASTUZUMAB
     Dosage: 483 MILLIGRAM, CYCLE, 483 MG, CYCLIC (420 MG EVERY 3 WEEKS)
     Route: 042
     Dates: start: 20160413
  7. TRASTUZUMAB [Suspect]
     Active Substance: TRASTUZUMAB
     Dosage: 651 MILLIGRAM, Q3W, , LOADING DOSE PLANNED NUMBER OF CYCLES COMPLETED
     Route: 041
     Dates: start: 20160323, end: 20160323
  8. TAMOXIFEN [Suspect]
     Active Substance: TAMOXIFEN
     Indication: Breast cancer metastatic
     Dosage: UNK, QD (UNK, 1X/DAY)
     Route: 048
     Dates: start: 201603
  9. TAMOXIFEN [Suspect]
     Active Substance: TAMOXIFEN
     Dosage: UNK
     Route: 048
     Dates: start: 201603
  10. DOCETAXEL [Suspect]
     Active Substance: DOCETAXEL
     Indication: Breast cancer metastatic
     Dosage: 140 MILLIGRAM, Q3W
     Route: 042
     Dates: start: 20160324, end: 20160526
  11. DOCETAXEL [Suspect]
     Active Substance: DOCETAXEL
     Dosage: 110 MILLIGRAM, Q2W (THERAPY DISCONTINUED: PLANNED NUMBER OF CYCLES COMPLETED)
     Route: 042
     Dates: start: 20160526, end: 20160707
  12. DOCETAXEL [Suspect]
     Active Substance: DOCETAXEL
     Dosage: 140 MG, Q2W
     Route: 042
     Dates: start: 20160324, end: 20160526
  13. DOCETAXEL [Suspect]
     Active Substance: DOCETAXEL
     Dosage: 110 MILLIGRAM, Q3W (THERAPY DISCONTINUED: PLANNED NUMBER OF CYCLES COMPLETED)
     Route: 042
     Dates: start: 20160526, end: 20160707
  14. DOCETAXEL [Suspect]
     Active Substance: DOCETAXEL
     Dosage: 140 MILLIGRAM, Q2W, 140 MG, ONCE IN 2 WEEKS
     Route: 042
     Dates: start: 20160324, end: 20160526
  15. DOCETAXEL [Suspect]
     Active Substance: DOCETAXEL
     Dosage: 140 MILLIGRAM, CYCLE, (ONCE IN 2 WEEKS)
     Route: 042
     Dates: start: 20160324, end: 20160526
  16. DOCETAXEL [Suspect]
     Active Substance: DOCETAXEL
     Dosage: 110 MILLIGRAM, CYCLE, (EVERY 2 WEEKS), (THERAPY DISCONTINUED: PLANNED NUMBER OF
     Route: 042
     Dates: start: 20160526, end: 20160707
  17. PERTUZUMAB [Suspect]
     Active Substance: PERTUZUMAB
     Indication: Breast cancer metastatic
     Dosage: 420 MILLIGRAM, 3XW
     Route: 042
     Dates: start: 20160324
  18. PERTUZUMAB [Suspect]
     Active Substance: PERTUZUMAB
     Dosage: 840 MILLIGRAM,QD,LOADING DOSE: PLANNED NUMBER OF
     Route: 042
     Dates: start: 20160324, end: 20160324
  19. PERTUZUMAB [Suspect]
     Active Substance: PERTUZUMAB
     Dosage: 840 MILLIGRAM,QD,LOADING DOSE: PLANNED NUMBER OF
     Route: 042
     Dates: start: 20160324, end: 20160324
  20. PERTUZUMAB [Suspect]
     Active Substance: PERTUZUMAB
     Dosage: 420 MILLIGRAM, Q3W
     Route: 042
     Dates: start: 20160413
  21. PERTUZUMAB [Suspect]
     Active Substance: PERTUZUMAB
     Dosage: 1260 MILLIGRAM, QW
     Route: 042
  22. PERTUZUMAB [Suspect]
     Active Substance: PERTUZUMAB
     Dosage: 420 MILLIGRAM
     Route: 042
  23. PERTUZUMAB [Suspect]
     Active Substance: PERTUZUMAB
     Dosage: 420 MILLIGRAM, Q3W (420 MG 0.33 WEEK)
     Route: 042
  24. PERTUZUMAB [Suspect]
     Active Substance: PERTUZUMAB
     Dosage: 1260 MILLIGRAM, QW
     Route: 042
  25. PERTUZUMAB [Suspect]
     Active Substance: PERTUZUMAB
     Dosage: 1260 MILLIGRAM, QW
     Route: 042
  26. DEXAMETHASONE [Concomitant]
     Active Substance: DEXAMETHASONE
     Indication: Breast cancer metastatic
     Dosage: 20 MILLIGRAM, Q3W
     Route: 042
     Dates: start: 20160324
  27. DEXAMETHASONE [Concomitant]
     Active Substance: DEXAMETHASONE
     Indication: Metastases to bone
     Dosage: 6 MILLIGRAM, Q3W
     Route: 042
     Dates: start: 20191113
  28. DEXAMETHASONE [Concomitant]
     Active Substance: DEXAMETHASONE
     Dosage: UNK
     Route: 065
  29. OMEPRAZOLE [Concomitant]
     Active Substance: OMEPRAZOLE
     Indication: Dyspepsia
     Dosage: 20 MILLIGRAM, QD (START 27-JUL-2017)
     Route: 048
     Dates: start: 20170727
  30. OMEPRAZOLE [Concomitant]
     Active Substance: OMEPRAZOLE
     Dosage: UNK
     Route: 065
  31. OMEPRAZOLE [Concomitant]
     Active Substance: OMEPRAZOLE
     Dosage: UNK
     Route: 065
  32. CITALOPRAM [Concomitant]
     Active Substance: CITALOPRAM HYDROBROMIDE
     Indication: Thrombosis prophylaxis
     Dosage: 20 MILLIGRAM, QD
     Route: 048
     Dates: start: 201003
  33. DENOSUMAB [Concomitant]
     Active Substance: DENOSUMAB
     Indication: Metastases to bone
     Dosage: UNK
     Route: 065
  34. DENOSUMAB [Concomitant]
     Active Substance: DENOSUMAB
     Indication: Breast cancer metastatic
     Dosage: 120 MILLIGRAM, MONTHLY, QMO (120 MG Q28D)
     Route: 058
     Dates: start: 20160323
  35. DENOSUMAB [Concomitant]
     Active Substance: DENOSUMAB
     Dosage: 120 MG (PHARMACEUTICAL DOSE FORM: 120)
     Route: 065
  36. DENOSUMAB [Concomitant]
     Active Substance: DENOSUMAB
     Dosage: UNK, DOSE FORM: 120
     Route: 065
  37. DENOSUMAB [Concomitant]
     Active Substance: DENOSUMAB
     Dosage: 120 MILLIGRAM, Q28D
     Route: 058
  38. DALTEPARIN [Concomitant]
     Active Substance: DALTEPARIN
     Indication: Thrombosis prophylaxis
     Dosage: 5000 INTERNATIONAL UNIT, QD (START 02-AUG-2016)
     Route: 058
     Dates: start: 20160802, end: 20160809
  39. DALTEPARIN [Concomitant]
     Active Substance: DALTEPARIN
     Dosage: UNK
     Route: 065
  40. ACETAMINOPHEN [Concomitant]
     Active Substance: ACETAMINOPHEN
     Indication: Product used for unknown indication
     Dosage: UNK
     Route: 065

REACTIONS (9)
  - Atrial thrombosis [Recovered/Resolved]
  - Infection [Recovered/Resolved]
  - Musculoskeletal stiffness [Recovered/Resolved]
  - Joint stiffness [Recovered/Resolved]
  - Atrophic vulvovaginitis [Recovered/Resolved]
  - Influenza like illness [Recovered/Resolved]
  - Fatigue [Recovered/Resolved]
  - Diarrhoea [Not Recovered/Not Resolved]
  - Off label use [Unknown]

NARRATIVE: CASE EVENT DATE: 20160324
